FAERS Safety Report 21203780 (Version 1)
Quarter: 2022Q3

REPORT INFORMATION
  Report Type: Spontaneous
  Country: TN (occurrence: TN)
  Receive Date: 20220811
  Receipt Date: 20220811
  Transmission Date: 20221027
  Serious: Yes (Other)
  Sender: FDA-Public Use
  Company Number: TN-PRINSTON PHARMACEUTICAL INC.-2022PRN00278

PATIENT
  Age: 39 Year
  Sex: Male

DRUGS (2)
  1. DOXYCYCLINE HYCLATE [Suspect]
     Active Substance: DOXYCYCLINE HYCLATE
     Indication: Plasmodium falciparum infection
     Dosage: 100 MG, 1X/DAY
     Route: 065
  2. QUININE [Suspect]
     Active Substance: QUININE
     Indication: Plasmodium falciparum infection
     Dosage: 750 MG, 3X/DAY
     Route: 048

REACTIONS (4)
  - Inhibitory drug interaction [Recovered/Resolved]
  - Hallucination, auditory [Unknown]
  - Hallucination, visual [Unknown]
  - Cinchonism [Recovering/Resolving]
